FAERS Safety Report 7411485-0 (Version None)
Quarter: 2011Q2

REPORT INFORMATION
  Report Type: 
  Country: None (occurrence: None)
  Receive Date: 20110413
  Receipt Date: 20110405
  Transmission Date: 20111010
  Serious: Yes (Death, Hospitalization, Other)
  Sender: FDA-Public Use
  Company Number: CA-NOVOPROD-326207

PATIENT
  Age: 65 Year
  Sex: Female
  Weight: 80 kg

DRUGS (6)
  1. CRYOPRECIPITATES [Concomitant]
  2. PHENYLEPHRINE HCL [Concomitant]
  3. NIASTASE [Suspect]
     Indication: PRODUCT USED FOR UNKNOWN INDICATION
     Dosage: 6 MG GIVEN ONCE
     Route: 042
  4. RED BLOOD CELLS [Concomitant]
  5. PLATELETS [Concomitant]
  6. PLASMA [Concomitant]

REACTIONS (3)
  - ACUTE MYOCARDIAL INFARCTION [None]
  - TROPONIN INCREASED [None]
  - CARDIAC ARREST [None]
